FAERS Safety Report 10917683 (Version 1)
Quarter: 2015Q1

REPORT INFORMATION
  Report Type: Spontaneous
  Country: US (occurrence: None)
  Receive Date: 20150311
  Receipt Date: 20150311
  Transmission Date: 20150721
  Serious: Yes (Hospitalization)
  Sender: FDA-Public Use
  Company Number: HYP201502-000020

PATIENT
  Age: 25 Month
  Sex: Male

DRUGS (4)
  1. CHOLECALCIFEROL (COLECALCIFEROL) [Concomitant]
  2. RAVICTI [Suspect]
     Active Substance: GLYCEROL PHENYLBUTYRATE
     Indication: OFF LABEL USE
     Dates: start: 201401
  3. NOVAFERRUM (ASCORBIC ACID, FOLIC ACID, POLYSACCHARIDE-IRON COMPLEX) [Concomitant]
  4. CITRULLINE [Concomitant]
     Active Substance: CITRULLINE

REACTIONS (4)
  - Staphylococcal abscess [None]
  - Cellulitis staphylococcal [None]
  - Pelvic abscess [None]
  - Folliculitis [None]

NARRATIVE: CASE EVENT DATE: 20150212
